FAERS Safety Report 12725611 (Version 1)
Quarter: 2016Q3

REPORT INFORMATION
  Report Type: Spontaneous
  Country: US (occurrence: US)
  Receive Date: 20160908
  Receipt Date: 20160908
  Transmission Date: 20161109
  Serious: Yes (Other)
  Sender: FDA-Public Use
  Company Number: None

PATIENT
  Age: 34 Year
  Sex: Female
  Weight: 83.25 kg

DRUGS (1)
  1. TRAMADOL. [Suspect]
     Active Substance: TRAMADOL
     Indication: PAIN
     Dosage: 1 TABLET EVERY 6 HOUSE ORAL
     Route: 048
     Dates: start: 20160903, end: 20160903

REACTIONS (19)
  - Skin discolouration [None]
  - Chest pain [None]
  - Nausea [None]
  - Hypoaesthesia [None]
  - Blood pressure increased [None]
  - Muscle spasms [None]
  - Peripheral coldness [None]
  - Hypopnoea [None]
  - Dizziness [None]
  - Paraesthesia [None]
  - Chills [None]
  - Paraesthesia oral [None]
  - Hypoaesthesia oral [None]
  - Musculoskeletal stiffness [None]
  - Heart rate increased [None]
  - Muscle tightness [None]
  - Hyperhidrosis [None]
  - Asthenia [None]
  - Dyspnoea [None]

NARRATIVE: CASE EVENT DATE: 20160904
